FAERS Safety Report 5609103-7 (Version None)
Quarter: 2008Q1

REPORT INFORMATION
  Report Type: 
  Country: None (occurrence: None)
  Receive Date: 20080131
  Receipt Date: 20080123
  Transmission Date: 20080703
  Serious: Yes (Hospitalization)
  Sender: FDA-Public Use
  Company Number: FR-BAYER-200811618GPV

PATIENT
  Age: 6 Year
  Sex: Male

DRUGS (2)
  1. ASPIRIN [Suspect]
     Indication: DRUG USE FOR UNKNOWN INDICATION
     Dosage: AS USED: 0.4 G
     Route: 048
  2. CHLOROQUINE PHOSPHATE [Suspect]
     Indication: DRUG USE FOR UNKNOWN INDICATION
     Dosage: TOTAL DAILY DOSE: 300 MG
     Route: 048

REACTIONS (9)
  - ABDOMINAL PAIN [None]
  - FATIGUE [None]
  - HAEMOGLOBINURIA [None]
  - HAEMOLYTIC ANAEMIA [None]
  - OCULAR ICTERUS [None]
  - PALLOR [None]
  - PRESYNCOPE [None]
  - SYNCOPE [None]
  - VOMITING [None]
